FAERS Safety Report 12921852 (Version 1)
Quarter: 2016Q4

REPORT INFORMATION
  Report Type: Report from Study
  Country: FR (occurrence: FR)
  Receive Date: 20161108
  Receipt Date: 20161108
  Transmission Date: 20170207
  Serious: Yes (Hospitalization)
  Sender: FDA-Public Use
  Company Number: FR-ROCHE-1629068

PATIENT
  Age: 58 Year
  Sex: Female
  Weight: 48.4 kg

DRUGS (8)
  1. ACUPAN [Concomitant]
     Active Substance: NEFOPAM HYDROCHLORIDE
     Route: 065
     Dates: start: 20150717, end: 201508
  2. APRANAX [Concomitant]
     Active Substance: NAPROXEN
     Route: 065
     Dates: start: 20150717, end: 201508
  3. RO 5509554 (CSF-1R MAB) [Suspect]
     Active Substance: EMACTUZUMAB
     Indication: NEOPLASM
     Dosage: DATE OF LAST DOSE PRIOR TO SAE: 30/JUL/2015
     Route: 042
     Dates: start: 20150409
  4. SOLUPRED (FRANCE) [Concomitant]
     Active Substance: PREDNISOLONE
     Route: 065
     Dates: start: 201506
  5. ATEZOLIZUMAB [Suspect]
     Active Substance: ATEZOLIZUMAB
     Indication: NEOPLASM
     Dosage: DATE OF LAST DOSE PRIOR TO SAE: 30/JUL/2015
     Route: 042
     Dates: start: 20150409
  6. DIPROSONE [Concomitant]
     Active Substance: BETAMETHASONE DIPROPIONATE
     Route: 065
     Dates: start: 201508
  7. CORTANCYL [Concomitant]
     Active Substance: PREDNISONE
     Route: 065
     Dates: start: 20150821, end: 201509
  8. ESOMEPRAZOLE [Concomitant]
     Active Substance: ESOMEPRAZOLE
     Route: 065
     Dates: start: 201403

REACTIONS (2)
  - Pericarditis [Recovered/Resolved]
  - Pericarditis [Recovering/Resolving]

NARRATIVE: CASE EVENT DATE: 20150819
